FAERS Safety Report 5271996-3 (Version None)
Quarter: 2007Q1

REPORT INFORMATION
  Report Type: 
  Country: None (occurrence: None)
  Receive Date: 20061214
  Receipt Date: 20060331
  Transmission Date: 20070707
  Serious: Yes (Hospitalization, Other)
  Sender: FDA-Public Use
  Company Number: 2006012764

PATIENT
  Age: 87 Year
  Sex: Female
  Weight: 53.5244 kg

DRUGS (5)
  1. BEXTRA [Suspect]
     Indication: BACK PAIN
     Dates: end: 20030201
  2. ANTIHYPERTENSIVES (ANTIHYPERTENSIVES) [Concomitant]
  3. ALL OTHER THERAPEUTIC PRODUCTS (ALL OTHER THERAPEUTIC PRODUCTS) [Concomitant]
  4. WARFARIN SODIUM [Concomitant]
  5. ZANTC (RANITIDINE HYDROCHLORIDE) [Concomitant]

REACTIONS (8)
  - BLOOD CREATININE INCREASED [None]
  - BLOOD UREA INCREASED [None]
  - CHANGE OF BOWEL HABIT [None]
  - COUGH [None]
  - DUODENAL ULCER HAEMORRHAGE [None]
  - HAEMOGLOBIN DECREASED [None]
  - HIATUS HERNIA [None]
  - NASOPHARYNGITIS [None]
